FAERS Safety Report 23190881 (Version 2)
Quarter: 2024Q1

REPORT INFORMATION
  Report Type: Report from Study
  Country: US (occurrence: US)
  Receive Date: 20231116
  Receipt Date: 20240124
  Transmission Date: 20240409
  Serious: Yes (Hospitalization, Other)
  Sender: FDA-Public Use
  Company Number: US-ALXN-A202309202AA

PATIENT
  Sex: Female

DRUGS (2)
  1. ULTOMIRIS [Suspect]
     Active Substance: RAVULIZUMAB-CWVZ
     Indication: Myasthenia gravis
     Dosage: UNK
     Route: 065
     Dates: start: 202301
  2. MESTINON [Concomitant]
     Active Substance: PYRIDOSTIGMINE BROMIDE
     Indication: Product used for unknown indication
     Dosage: UNK
     Route: 065

REACTIONS (26)
  - Dyspnoea [Unknown]
  - Vascular device infection [Unknown]
  - Bacteraemia [Unknown]
  - Eye disorder [Unknown]
  - Blindness [Unknown]
  - Meningitis [Unknown]
  - Ophthalmoplegia [Recovering/Resolving]
  - Nuchal rigidity [Unknown]
  - Musculoskeletal discomfort [Unknown]
  - Anxiety [Unknown]
  - Drug ineffective [Unknown]
  - Headache [Unknown]
  - Infusion related reaction [Unknown]
  - Nervous system disorder [Unknown]
  - Fall [Unknown]
  - Influenza [Unknown]
  - Product administration interrupted [Unknown]
  - Chest pain [Unknown]
  - Gait disturbance [Unknown]
  - Spinal disorder [Unknown]
  - Fatigue [Unknown]
  - Urinary tract infection [Unknown]
  - Back pain [Unknown]
  - Dizziness [Unknown]
  - Diplopia [Unknown]
  - Vision blurred [Unknown]
